FAERS Safety Report 4345950-X (Version None)
Quarter: 2004Q2

REPORT INFORMATION
  Report Type: 
  Country: None (occurrence: None)
  Receive Date: 20040423
  Receipt Date: 20040423
  Transmission Date: 20050107
  Serious: Yes (Disabling)
  Sender: FDA-Public Use
  Company Number: None

PATIENT
  Age: 35 Year
  Sex: Female
  Weight: 27.2158 kg

DRUGS (2)
  1. PAXIL [Suspect]
     Dosage: ANY
     Dates: start: 19991101, end: 20000731
  2. PAXIL [Suspect]
     Dosage: ANY
     Dates: start: 20031101, end: 20041231

REACTIONS (2)
  - MUSCLE TWITCHING [None]
  - SLEEP PARALYSIS [None]
